FAERS Safety Report 17612688 (Version 3)
Quarter: 2020Q2

REPORT INFORMATION
  Report Type: Report from Study
  Country: US (occurrence: US)
  Receive Date: 20200401
  Receipt Date: 20200420
  Transmission Date: 20200713
  Serious: Yes (Death, Hospitalization)
  Sender: FDA-Public Use
  Company Number: US-ACTELION-A-US2020-202289

PATIENT
  Sex: Male
  Weight: 112.93 kg

DRUGS (3)
  1. VELETRI [Suspect]
     Active Substance: EPOPROSTENOL
     Indication: PULMONARY ARTERIAL HYPERTENSION
     Dosage: 24 NG/KG, PER MIN
     Route: 042
     Dates: end: 20200324
  2. TADALAFIL. [Concomitant]
     Active Substance: TADALAFIL
  3. OPSUMIT [Suspect]
     Active Substance: MACITENTAN
     Indication: PULMONARY ARTERIAL HYPERTENSION
     Dosage: 10 MG, QD
     Route: 048
     Dates: end: 20200324

REACTIONS (10)
  - Acute kidney injury [Fatal]
  - Right ventricular failure [Fatal]
  - Generalised oedema [Unknown]
  - Dysphagia [Unknown]
  - Disease progression [Fatal]
  - Ascites [Unknown]
  - Fluid retention [Unknown]
  - Dyspnoea [Unknown]
  - Abdominal distension [Unknown]
  - Pulmonary arterial hypertension [Fatal]
